FAERS Safety Report 9476626 (Version 1)
Quarter: 2013Q3

REPORT INFORMATION
  Report Type: Spontaneous
  Country: US (occurrence: None)
  Receive Date: 20130823
  Receipt Date: 20130823
  Transmission Date: 20140515
  Serious: Yes (Disabling)
  Sender: FDA-Public Use
  Company Number: None

PATIENT
  Age: 19 Year
  Sex: Female
  Weight: 48.08 kg

DRUGS (1)
  1. CLARAVIS [Suspect]
     Indication: ACNE
     Route: 048
     Dates: start: 20130725, end: 20130807

REACTIONS (8)
  - Decreased appetite [None]
  - Dry eye [None]
  - Dry throat [None]
  - Lip dry [None]
  - Hearing impaired [None]
  - Hypopnoea [None]
  - Hypotension [None]
  - Heart rate increased [None]
